FAERS Safety Report 15254393 (Version 9)
Quarter: 2019Q1

REPORT INFORMATION
  Report Type: Report from Study
  Country: PL (occurrence: PL)
  Receive Date: 20180808
  Receipt Date: 20190328
  Transmission Date: 20190417
  Serious: Yes (Hospitalization)
  Sender: FDA-Public Use
  Company Number: PL-CELGENEUS-POL-20180704434

PATIENT
  Age: 66 Year
  Sex: Male
  Weight: 95 kg

DRUGS (19)
  1. VEROSPIRON [Concomitant]
     Active Substance: SPIRONOLACTONE
     Indication: HYPERTENSION
     Dosage: 25 MILLIGRAM
     Route: 048
     Dates: start: 2013
  2. ENCORTON [Concomitant]
     Active Substance: PREDNISONE
     Dosage: 20 MILLIGRAM
     Route: 048
     Dates: start: 20180921, end: 20180924
  3. BETO ZK [Concomitant]
     Active Substance: METOPROLOL SUCCINATE
     Indication: HYPERTENSION
     Dosage: 100 MILLIGRAM
     Route: 048
     Dates: start: 2011
  4. ASAMAX [Concomitant]
     Active Substance: MESALAMINE
     Indication: COLITIS ULCERATIVE
     Dosage: 1 GRAM
     Route: 048
     Dates: start: 201701
  5. TARDYFERON [Concomitant]
     Active Substance: FERROUS SULFATE
     Indication: ANAEMIA
     Dosage: .08 GRAM
     Route: 048
     Dates: start: 2018
  6. DIGOXIN. [Concomitant]
     Active Substance: DIGOXIN
     Indication: ARRHYTHMIA
     Dosage: .1 MILLIGRAM
     Route: 048
     Dates: start: 2013
  7. DEXAK SL [Concomitant]
     Indication: PAIN
     Route: 048
     Dates: start: 20180712
  8. ENCORTON [Concomitant]
     Active Substance: PREDNISONE
     Dosage: 15 MILLIGRAM
     Route: 048
     Dates: start: 20180925
  9. MESALAZINE [Concomitant]
     Active Substance: MESALAMINE
     Indication: COLITIS ULCERATIVE
     Dosage: 1 GRAM
     Route: 048
     Dates: start: 2018
  10. OPIPRAMOLUM [Concomitant]
     Indication: STRESS
     Dosage: 50 MILLIGRAM
     Route: 048
     Dates: start: 201808
  11. ENCORTON [Concomitant]
     Active Substance: PREDNISONE
     Indication: COLITIS ULCERATIVE
     Dosage: 40 MILLIGRAM
     Route: 048
     Dates: start: 2018, end: 20180920
  12. SALOFALK [Concomitant]
     Active Substance: MESALAMINE
     Indication: PRODUCT USED FOR UNKNOWN INDICATION
     Dosage: 1 GRAM
     Route: 065
  13. CC-10004 [Suspect]
     Active Substance: APREMILAST
     Indication: COLITIS ULCERATIVE
     Route: 048
     Dates: start: 20170419, end: 20180726
  14. OPACODEN [Concomitant]
     Indication: ATRIAL FIBRILLATION
     Dosage: .2 GRAM
     Route: 048
     Dates: start: 2018
  15. UPROX [Concomitant]
     Indication: BENIGN PROSTATIC HYPERPLASIA
     Dosage: .4 MILLIGRAM
     Route: 048
     Dates: start: 2018
  16. ATORIS [Concomitant]
     Active Substance: ATORVASTATIN CALCIUM
     Indication: BLOOD CHOLESTEROL INCREASED
     Dosage: 30 MILLIGRAM
     Route: 048
     Dates: start: 2013
  17. ENCORTON [Concomitant]
     Active Substance: PREDNISONE
     Dosage: 20 MILLIGRAM
     Route: 048
     Dates: start: 201702, end: 20170712
  18. DEBUTIR [Concomitant]
     Indication: COLITIS ULCERATIVE
     Dosage: 300 MILLIGRAM
     Route: 048
     Dates: start: 2018
  19. PRADAXA [Concomitant]
     Active Substance: DABIGATRAN ETEXILATE MESYLATE
     Indication: ATRIAL FIBRILLATION
     Dosage: .3 GRAM
     Route: 048
     Dates: start: 2018

REACTIONS (3)
  - Epididymitis tuberculous [Recovered/Resolved]
  - General physical health deterioration [Not Recovered/Not Resolved]
  - Epididymal neoplasm [Recovered/Resolved with Sequelae]

NARRATIVE: CASE EVENT DATE: 201806
